FAERS Safety Report 8784611 (Version 2)
Quarter: 2012Q4

REPORT INFORMATION
  Report Type: Spontaneous
  Country: JP (occurrence: None)
  Receive Date: 20120830
  Receipt Date: 20121004
  Transmission Date: 20130627
  Serious: Yes (Other)
  Sender: FDA-Public Use
  Company Number: JP-2012-16086

PATIENT
  Age: 95 Year
  Sex: Female
  Weight: 37 kg

DRUGS (11)
  1. SAMSCA (TOLVAPTAN) TABLET [Suspect]
     Indication: FLUID RETENTION
     Dosage: 7.5 mg milligram(s), qam, Oral
     Route: 048
     Dates: start: 20120728, end: 20120806
  2. LENDORMIN (BROTIZOLAM) [Concomitant]
  3. BAYASPIRIN (ACETYLSALICYLIC ACID) [Concomitant]
  4. FLUITRAN (TRICHLOMETHIAZIDE) [Concomitant]
  5. LASIX (FUROSEMIDE) [Concomitant]
  6. LUPRAC (TORASEMIDE) [Concomitant]
  7. SUNNRYTHM (PILSICAINIDE HYDROCHLORIDE) [Concomitant]
  8. MAGLAX (MAGNESIUM OXIDE) [Concomitant]
  9. KALLIKREIN (KALLIDINOGENASE) [Concomitant]
  10. PANTOSIN (PANTETHINE) [Concomitant]
  11. MYONAL (EPERISONE HYDROCHLORIDE) [Concomitant]

REACTIONS (4)
  - Cardiac failure [None]
  - Blood urea increased [None]
  - Hepatic function abnormal [None]
  - Volume blood decreased [None]
